FAERS Safety Report 16470694 (Version 1)
Quarter: 2019Q2

REPORT INFORMATION
  Report Type: Spontaneous
  Country: US (occurrence: US)
  Receive Date: 20190624
  Receipt Date: 20190624
  Transmission Date: 20190711
  Serious: No
  Sender: FDA-Public Use
  Company Number: US-CATALYST PHARMACEUTICALS, INC-2019CAT00094

PATIENT
  Sex: Male
  Weight: 73.92 kg

DRUGS (4)
  1. FIRDAPSE [Suspect]
     Active Substance: AMIFAMPRIDINE
     Dosage: 20 MG, 2X/DAY
     Route: 048
  2. PREDNISONE. [Concomitant]
     Active Substance: PREDNISONE
  3. FIRDAPSE [Suspect]
     Active Substance: AMIFAMPRIDINE
     Indication: MYASTHENIC SYNDROME
     Dosage: 30 MG, 3X/DAY
     Route: 048
  4. UNSPECIFIED CHOLESTEROL PILLS [Concomitant]

REACTIONS (3)
  - Paraesthesia [Recovering/Resolving]
  - Overdose [Recovered/Resolved]
  - Feeling cold [Recovering/Resolving]
